FAERS Safety Report 8107972 (Version 2)
Quarter: 2013Q1

REPORT INFORMATION
  Report Type: Spontaneous
  Country: JP (occurrence: JP)
  Receive Date: 20110826
  Receipt Date: 20130125
  Transmission Date: 20140127
  Serious: Yes (Death, Other)
  Sender: FDA-Public Use
  Company Number: JP-BAYER-2011-045545

PATIENT
  Age: 48 Year
  Sex: Female
  Weight: 46 kg

DRUGS (3)
  1. NEXAVAR [Suspect]
     Indication: HEPATOCELLULAR CARCINOMA
     Dosage: 400 MG, BID
     Route: 048
     Dates: start: 20110516, end: 20110519
  2. BARACLUDE [Concomitant]
     Indication: HEPATITIS B
     Dosage: UNK
     Route: 048
     Dates: start: 20100409, end: 20110730
  3. URSO [Concomitant]
     Indication: HEPATITIS B
     Dosage: UNK
     Route: 048
     Dates: start: 20100409, end: 20110730

REACTIONS (8)
  - Hepatocellular carcinoma [Fatal]
  - Liver disorder [Recovered/Resolved]
  - Alanine aminotransferase increased [Recovered/Resolved]
  - Malaise [Unknown]
  - Pyrexia [Recovered/Resolved]
  - Altered state of consciousness [Recovered/Resolved]
  - Diarrhoea [Recovered/Resolved]
  - Somnolence [Recovered/Resolved]
